FAERS Safety Report 6868164-8 (Version None)
Quarter: 2010Q3

REPORT INFORMATION
  Report Type: 
  Country: None (occurrence: None)
  Receive Date: 20100722
  Receipt Date: 20080521
  Transmission Date: 20110219
  Serious: No
  Sender: FDA-Public Use
  Company Number: US-PFIZER INC-2008044937

PATIENT
  Sex: Female
  Weight: 56.8 kg

DRUGS (9)
  1. CHANTIX [Suspect]
     Indication: SMOKING CESSATION THERAPY
     Dates: start: 20080506
  2. ATACAND [Concomitant]
  3. TOPROL-XL [Concomitant]
  4. DEMADEX [Concomitant]
  5. DIGITEK [Concomitant]
  6. ZOLOFT [Concomitant]
  7. ATIVAN [Concomitant]
  8. LEVOTHYROXINE SODIUM [Concomitant]
  9. ACETYLSALICYLIC ACID [Concomitant]

REACTIONS (2)
  - NAUSEA [None]
  - VOMITING [None]
